FAERS Safety Report 7638401-0 (Version None)
Quarter: 2011Q3

REPORT INFORMATION
  Report Type: 
  Country: None (occurrence: None)
  Receive Date: 20110726
  Receipt Date: 20110726
  Transmission Date: 20111222
  Serious: Yes (Disabling, Other)
  Sender: FDA-Public Use
  Company Number: None

PATIENT
  Age: 34 Year
  Sex: Male
  Weight: 68.2 kg

DRUGS (1)
  1. PROPECIA [Suspect]
     Indication: ALOPECIA
     Dosage: 1MG ONCE DAILY ORALLY
     Route: 048
     Dates: start: 20050301, end: 20050801

REACTIONS (7)
  - LIBIDO DECREASED [None]
  - ERECTILE DYSFUNCTION [None]
  - ANXIETY [None]
  - DEPRESSION [None]
  - SUICIDAL IDEATION [None]
  - SEMEN VOLUME DECREASED [None]
  - SEMEN VISCOSITY ABNORMAL [None]
